FAERS Safety Report 6545429-0 (Version None)
Quarter: 2010Q1

REPORT INFORMATION
  Report Type: 
  Country: None (occurrence: None)
  Receive Date: 20100119
  Receipt Date: 20100107
  Transmission Date: 20100710
  Serious: Yes (Death, Hospitalization)
  Sender: FDA-Public Use
  Company Number: 2009PL000242

PATIENT
  Age: 53 Year
  Sex: Female
  Weight: 58.9676 kg

DRUGS (1)
  1. LOTRONEX [Suspect]
     Indication: IRRITABLE BOWEL SYNDROME
     Dosage: 1 MG;QD
     Dates: start: 20071201, end: 20080901

REACTIONS (5)
  - DISEASE COMPLICATION [None]
  - GASTRITIS [None]
  - HAEMATEMESIS [None]
  - HEPATIC CIRRHOSIS [None]
  - LIVER INJURY [None]
